FAERS Safety Report 15148687 (Version 1)
Quarter: 2018Q3

REPORT INFORMATION
  Report Type: Spontaneous
  Country: GB (occurrence: GB)
  Receive Date: 20180716
  Receipt Date: 20180716
  Transmission Date: 20181010
  Serious: No
  Sender: FDA-Public Use
  Company Number: GB-B. BRAUN MEDICAL INC.-2052109

PATIENT
  Age: 55 Year
  Sex: Female

DRUGS (2)
  1. COLOBREATHE [Suspect]
     Active Substance: COLISTIMETHATE SODIUM
  2. SODIUM CHLORIDE INJECTION USP 0264?7800?09 [Suspect]
     Active Substance: SODIUM CHLORIDE

REACTIONS (5)
  - Nasal discomfort [None]
  - Epistaxis [None]
  - Erythema [None]
  - Pain of skin [None]
  - Scab [None]
